FAERS Safety Report 19478997 (Version 1)
Quarter: 2021Q3

REPORT INFORMATION
  Report Type: Spontaneous
  Country: DE (occurrence: DE)
  Receive Date: 20210701
  Receipt Date: 20210701
  Transmission Date: 20211014
  Serious: Yes (Other)
  Sender: FDA-Public Use
  Company Number: DE-TEVA-2021-DE-1928952

PATIENT
  Age: 51 Year
  Sex: Male

DRUGS (12)
  1. METHOTREXATE. [Suspect]
     Active Substance: METHOTREXATE
     Dosage: CYCLE 4 AND 6 (1 CYCLE OF 3 WEEKS); DAY3?5
     Route: 065
  2. METHOTREXATE. [Suspect]
     Active Substance: METHOTREXATE
     Dosage: CYCLE 5 (1 CYCLE OF 2 WEEKS); DAY 2?4, ACTION TAKEN: THERAPY CONTINUED
     Route: 065
  3. ARA C [Suspect]
     Active Substance: CYTARABINE
     Dosage: CYCLE 5 (1 CYCLE OF 2 WEEKS); DAY 5, ADDITIONAL INFO: ACTION TAKEN: THERAPY CONTINUED
     Route: 050
  4. PREDNISOLONE. [Suspect]
     Active Substance: PREDNISOLONE
     Dosage: CYCLE 5 (1 CYCLE OF 2 WEEKS); DAY 2?4
     Route: 050
  5. METHOTREXATE. [Suspect]
     Active Substance: METHOTREXATE
     Dosage: CYCLE 5 (1 CYCLE OF 2 WEEKS); DAY 1
     Route: 042
  6. PREDNISOLONE. [Suspect]
     Active Substance: PREDNISOLONE
     Indication: CENTRAL NERVOUS SYSTEM LYMPHOMA
     Dosage: CYCLE 4 AND 6 (1 CYCLE OF 3 WEEKS); DAY3?5,ROUTE: {INTRACEREBROVENTRICULAR}, THERAPY CONTINUED
     Route: 050
  7. IFOSFAMIDE. [Suspect]
     Active Substance: IFOSFAMIDE
     Dosage: CYCLE 5 (1 CYCLE OF 2 WEEKS); DAY2?5
     Route: 042
  8. ARA C [Suspect]
     Active Substance: CYTARABINE
     Indication: CENTRAL NERVOUS SYSTEM LYMPHOMA
     Dosage: CYCLE 4 AND 6 (1 CYCLE OF 3 WEEKS); DAY 1?2
     Route: 042
  9. RITUXIMAB. [Suspect]
     Active Substance: RITUXIMAB
     Indication: CENTRAL NERVOUS SYSTEM LYMPHOMA
     Dosage: CYCLE 1?3 (1 CYCLE OF 2 WEEKS); DAY 0?1, ADDITIONAL INFO: ACTION TAKEN: THERAPY CONTINUED
     Route: 042
  10. ARA C [Suspect]
     Active Substance: CYTARABINE
     Dosage: CYCLE 4 AND 6 (1 CYCLE OF 3 WEEKS); DAY 6
     Route: 050
  11. METHOTREXATE. [Suspect]
     Active Substance: METHOTREXATE
     Indication: CENTRAL NERVOUS SYSTEM LYMPHOMA
     Dosage: CYCLE 1?3 (1 CYCLE OF 2 WEEKS); DAY 1
     Route: 042
  12. IFOSFAMIDE. [Suspect]
     Active Substance: IFOSFAMIDE
     Indication: CENTRAL NERVOUS SYSTEM LYMPHOMA
     Dosage: CYCLE 1?3 (1 CYCLE OF 2 WEEKS); DAY 2?5, ADDITIONAL INFO: ACTION TAKEN: THERAPY CONTINUED
     Route: 042

REACTIONS (1)
  - Staphylococcal infection [Recovered/Resolved]
